FAERS Safety Report 5895632-8 (Version None)
Quarter: 2008Q3

REPORT INFORMATION
  Report Type: 
  Country: None (occurrence: None)
  Receive Date: 20080924
  Receipt Date: 20080320
  Transmission Date: 20090109
  Serious: Yes (Hospitalization)
  Sender: FDA-Public Use
  Company Number: US-ASTRAZENECA-2006UW24247

PATIENT
  Age: 17741 Day
  Sex: Male
  Weight: 97.5 kg

DRUGS (7)
  1. SEROQUEL [Suspect]
     Indication: DEPRESSION
     Route: 048
     Dates: end: 20050801
  2. SEROQUEL [Suspect]
     Indication: BIPOLAR DISORDER
     Route: 048
     Dates: end: 20050801
  3. ABILIFY [Concomitant]
     Dates: start: 20070101, end: 20070101
  4. CLOZARIL [Concomitant]
  5. COMBALTA [Concomitant]
  6. ZOLOFT [Concomitant]
  7. DEPAKOTE [Concomitant]

REACTIONS (4)
  - BIPOLAR DISORDER [None]
  - BLOOD CHOLESTEROL INCREASED [None]
  - BLOOD TRIGLYCERIDES INCREASED [None]
  - DIABETES MELLITUS [None]
